FAERS Safety Report 12195504 (Version 2)
Quarter: 2016Q2

REPORT INFORMATION
  Report Type: Spontaneous
  Country: ZA (occurrence: ZA)
  Receive Date: 20160321
  Receipt Date: 20160418
  Transmission Date: 20160815
  Serious: Yes (Hospitalization, Other)
  Sender: FDA-Public Use
  Company Number: ZA-CIPLA-2016ZA02655

PATIENT

DRUGS (1)
  1. CARLOC [Suspect]
     Active Substance: CARVEDILOL
     Dosage: 12.5 MG, BID
     Route: 065

REACTIONS (12)
  - Influenza [Recovered/Resolved]
  - Muscle spasms [Unknown]
  - General physical health deterioration [Unknown]
  - Joint range of motion decreased [Unknown]
  - Cough [Recovered/Resolved]
  - Pain in extremity [Not Recovered/Not Resolved]
  - Bone pain [Not Recovered/Not Resolved]
  - Musculoskeletal stiffness [Unknown]
  - Overdose [Unknown]
  - Renal failure [Unknown]
  - Myalgia [Unknown]
  - Multiple organ dysfunction syndrome [Not Recovered/Not Resolved]
